FAERS Safety Report 5990906-4 (Version None)
Quarter: 2008Q4

REPORT INFORMATION
  Report Type: 
  Country: None (occurrence: None)
  Receive Date: 20081211
  Receipt Date: 20081201
  Transmission Date: 20090506
  Serious: Yes (Other)
  Sender: FDA-Public Use
  Company Number: GB-SANOFI-SYNTHELABO-A01200815755

PATIENT
  Age: 60 Year
  Sex: Female

DRUGS (2)
  1. CAPECITABINE [Concomitant]
     Dosage: 150 MG
  2. ELOXATIN [Suspect]
     Indication: COLORECTAL CANCER
     Dosage: 130 MG/M2
     Route: 041

REACTIONS (4)
  - BRADYCARDIA [None]
  - HYPOAESTHESIA [None]
  - LARYNGOSPASM [None]
  - MYOCARDIAL INFARCTION [None]
